FAERS Safety Report 24721661 (Version 1)
Quarter: 2024Q4

REPORT INFORMATION
  Report Type: Spontaneous
  Country: HR (occurrence: HR)
  Receive Date: 20241211
  Receipt Date: 20241211
  Transmission Date: 20250114
  Serious: Yes (Other)
  Sender: BAYER HEALTHCARE PHARMACEUTICALS INC.
  Company Number: HR-BAYER-2024A173381

PATIENT
  Sex: Male

DRUGS (4)
  1. NUBEQA [Suspect]
     Active Substance: DAROLUTAMIDE
     Indication: Hormone-dependent prostate cancer
     Dosage: 600 MG, BID
     Route: 048
     Dates: start: 2024
  2. NUBEQA [Suspect]
     Active Substance: DAROLUTAMIDE
     Indication: Hormone-dependent prostate cancer
     Dosage: UNK
  3. DOCETAXEL [Suspect]
     Active Substance: DOCETAXEL
     Dosage: UNK
     Dates: start: 2024
  4. GOSERELIN [Suspect]
     Active Substance: GOSERELIN
     Dosage: UNK
     Dates: start: 2019

REACTIONS (5)
  - Speech disorder [Recovering/Resolving]
  - Dysphagia [Recovering/Resolving]
  - Myasthenia gravis [None]
  - Weight decreased [None]
  - Lumbar vertebral fracture [None]

NARRATIVE: CASE EVENT DATE: 20240101
